FAERS Safety Report 20650992 (Version 3)
Quarter: 2022Q2

REPORT INFORMATION
  Report Type: Report from Study
  Country: BR (occurrence: BR)
  Receive Date: 20220329
  Receipt Date: 20220629
  Transmission Date: 20220720
  Serious: Yes (Other)
  Sender: FDA-Public Use
  Company Number: BR-JNJFOC-20220354825

PATIENT
  Sex: Male
  Weight: 80 kg

DRUGS (2)
  1. INFLIXIMAB [Suspect]
     Active Substance: INFLIXIMAB
     Indication: Crohn^s disease
     Route: 041
     Dates: start: 20190508, end: 20210916
  2. REMICADE [Suspect]
     Active Substance: INFLIXIMAB
     Indication: Crohn^s disease
     Dosage: VIAL AMPOULE 100 MG, 8 VIAL AMPOULES EVERY 8 WEEKS
     Route: 041
     Dates: start: 20190508

REACTIONS (1)
  - Tuberculosis [Unknown]

NARRATIVE: CASE EVENT DATE: 20210101
